FAERS Safety Report 13924105 (Version 1)
Quarter: 2017Q3

REPORT INFORMATION
  Report Type: Spontaneous
  Country: US (occurrence: None)
  Receive Date: 20170830
  Receipt Date: 20170830
  Transmission Date: 20171127
  Serious: Yes (Life-Threatening, Hospitalization)
  Sender: FDA-Public Use
  Company Number: None

PATIENT
  Age: 75 Year
  Sex: Male
  Weight: 70.17 kg

DRUGS (2)
  1. LORAZEPAM. [Suspect]
     Active Substance: LORAZEPAM
     Indication: ALCOHOL WITHDRAWAL SYNDROME
     Route: 048
     Dates: start: 20170708, end: 20170710
  2. CHLORDIAZEPOXIDE. [Suspect]
     Active Substance: CHLORDIAZEPOXIDE
     Indication: ALCOHOL WITHDRAWAL SYNDROME
     Route: 048
     Dates: start: 20170710, end: 20170711

REACTIONS (8)
  - Delirium [None]
  - Tachycardia [None]
  - Hypertension [None]
  - Hepatic cirrhosis [None]
  - Unresponsive to stimuli [None]
  - Wernicke^s encephalopathy [None]
  - Sedation [None]
  - Depressed level of consciousness [None]

NARRATIVE: CASE EVENT DATE: 20170710
